FAERS Safety Report 5951758-1 (Version None)
Quarter: 2008Q4

REPORT INFORMATION
  Report Type: 
  Country: None (occurrence: None)
  Receive Date: 20081113
  Receipt Date: 20081106
  Transmission Date: 20090506
  Serious: Yes (Other)
  Sender: FDA-Public Use
  Company Number: US-WYE-H06767008

PATIENT
  Age: 4 Year
  Sex: Male
  Weight: 20.88 kg

DRUGS (7)
  1. ROBITUSSIN [Suspect]
     Indication: PYREXIA
     Dosage: UNSPECIFIED DOSE
     Route: 048
     Dates: start: 20080501, end: 20080501
  2. ROBITUSSIN [Suspect]
     Indication: HEADACHE
  3. TRIAMINIC DM LONG LASTING [Suspect]
     Indication: HEADACHE
     Dosage: UNSPECIFIED DOSE
     Route: 048
     Dates: start: 20080801, end: 20080801
  4. TYLENOL (CAPLET) [Suspect]
     Indication: PYREXIA
     Dosage: 240 MG ONCE TOTAL
     Route: 048
     Dates: start: 20080501, end: 20080501
  5. TYLENOL (CAPLET) [Suspect]
     Indication: HEADACHE
     Dosage: 240 MG ONCE TOTAL
     Route: 048
     Dates: start: 20080801, end: 20080801
  6. TYLENOL (CAPLET) [Suspect]
     Dosage: 240 MG ONCE TOTAL
     Route: 048
     Dates: start: 20081018, end: 20081018
  7. TYLENOL (CAPLET) [Suspect]
     Dosage: 240 MG ONCE TOTAL
     Route: 048
     Dates: start: 20081021, end: 20081021

REACTIONS (7)
  - COUGH [None]
  - DRUG ADMINISTRATION ERROR [None]
  - HYPERSENSITIVITY [None]
  - PNEUMONIA BACTERIAL [None]
  - PRURITUS [None]
  - SWELLING FACE [None]
  - URTICARIA [None]
